FAERS Safety Report 6825819-9 (Version None)
Quarter: 2010Q3

REPORT INFORMATION
  Report Type: 
  Country: None (occurrence: None)
  Receive Date: 20100709
  Receipt Date: 20100701
  Transmission Date: 20110219
  Serious: Yes (Hospitalization, Other)
  Sender: FDA-Public Use
  Company Number: IS-ASTRAZENECA-2007UW01404

PATIENT
  Age: 544 Month
  Sex: Male
  Weight: 95.3 kg

DRUGS (18)
  1. SEROQUEL [Suspect]
     Indication: MAJOR DEPRESSION
     Route: 048
     Dates: start: 20011204, end: 20040701
  2. SEROQUEL [Suspect]
     Indication: PSYCHOTIC DISORDER
     Route: 048
     Dates: start: 20011204, end: 20040701
  3. SEROQUEL [Suspect]
     Dosage: 200 TO 300 MG
     Route: 048
     Dates: start: 20011204
  4. SEROQUEL [Suspect]
     Dosage: 200 TO 300 MG
     Route: 048
     Dates: start: 20011204
  5. SEROQUEL [Suspect]
     Dosage: 300-400 MG
     Route: 048
     Dates: start: 20040713, end: 20060101
  6. SEROQUEL [Suspect]
     Dosage: 300-400 MG
     Route: 048
     Dates: start: 20040713, end: 20060101
  7. SEROQUEL [Suspect]
     Route: 048
     Dates: end: 20051213
  8. SEROQUEL [Suspect]
     Route: 048
     Dates: end: 20051213
  9. HEROIN [Suspect]
  10. PROTONIX [Concomitant]
     Route: 048
     Dates: start: 20011030
  11. FLEXERIL [Concomitant]
     Route: 048
     Dates: start: 20011107
  12. METHADONE [Concomitant]
     Route: 048
     Dates: start: 20010922
  13. PROZAC [Concomitant]
     Route: 048
     Dates: start: 20040519
  14. TRAZODONE [Concomitant]
     Route: 048
     Dates: start: 20010512
  15. SOLU-MEDROL [Concomitant]
     Route: 048
     Dates: start: 20050214
  16. SINGULAIR [Concomitant]
     Route: 048
     Dates: start: 20050214
  17. REMERON [Concomitant]
     Route: 048
     Dates: start: 20020128
  18. PAXIL [Concomitant]
     Route: 048
     Dates: start: 20020128

REACTIONS (24)
  - ANIMAL BITE [None]
  - ARTHRITIS [None]
  - ASTHMA [None]
  - BACK INJURY [None]
  - BACK PAIN [None]
  - CHEMICAL BURNS OF EYE [None]
  - CHRONIC OBSTRUCTIVE PULMONARY DISEASE [None]
  - DIABETES MELLITUS INADEQUATE CONTROL [None]
  - DYSURIA [None]
  - FOREIGN BODY IN EYE [None]
  - GASTRITIS [None]
  - HEADACHE [None]
  - HEPATITIS C [None]
  - HYPERGLYCAEMIA [None]
  - INSOMNIA [None]
  - NASAL CONGESTION [None]
  - OEDEMA PERIPHERAL [None]
  - OVERDOSE [None]
  - PAIN [None]
  - PNEUMONIA [None]
  - PYREXIA [None]
  - SKIN LACERATION [None]
  - TACHYCARDIA [None]
  - TYPE 2 DIABETES MELLITUS [None]
